FAERS Safety Report 14583346 (Version 1)
Quarter: 2018Q1

REPORT INFORMATION
  Report Type: Spontaneous
  Country: DE (occurrence: DE)
  Receive Date: 20180228
  Receipt Date: 20180228
  Transmission Date: 20180509
  Serious: Yes (Life-Threatening, Hospitalization, Other)
  Sender: FDA-Public Use
  Company Number: DE-OTSUKA-DJ20111011

PATIENT

DRUGS (13)
  1. PANTOPRAZOLE [Concomitant]
     Active Substance: PANTOPRAZOLE
     Route: 065
  2. RAMIPRIL. [Concomitant]
     Active Substance: RAMIPRIL
     Route: 065
  3. L [Concomitant]
     Route: 065
  4. DOXAZOSIN [Concomitant]
     Active Substance: DOXAZOSIN\DOXAZOSIN MESYLATE
     Route: 065
  5. CATAPRESAN [Concomitant]
     Active Substance: CLONIDINE
     Route: 065
  6. MACROGOL [Concomitant]
     Active Substance: POLYETHYLENE GLYCOLS
     Route: 065
  7. DIHYDRALAZINE [Concomitant]
     Active Substance: DIHYDRALAZINE
     Route: 065
  8. DOMPERIDONE [Concomitant]
     Active Substance: DOMPERIDONE
     Route: 065
  9. L-THYROXINE [Concomitant]
     Active Substance: LEVOTHYROXINE
     Route: 065
  10. AMLODIPINE [Concomitant]
     Active Substance: AMLODIPINE BESYLATE
     Route: 065
  11. ZIPRASIDONE. [Concomitant]
     Active Substance: ZIPRASIDONE
     Route: 065
  12. ENOXAPARIN [Concomitant]
     Active Substance: ENOXAPARIN
     Route: 058
  13. ABILIFY [Suspect]
     Active Substance: ARIPIPRAZOLE
     Indication: PSYCHOTIC DISORDER
     Route: 048
     Dates: start: 20110209, end: 20110214

REACTIONS (5)
  - Hypothermia [Recovered/Resolved]
  - Respiratory failure [Unknown]
  - Hypothyroidism [Unknown]
  - Oesophagitis [Unknown]
  - Haematemesis [Unknown]

NARRATIVE: CASE EVENT DATE: 20110211
